FAERS Safety Report 11693041 (Version 1)
Quarter: 2015Q4

REPORT INFORMATION
  Report Type: Spontaneous
  Country: US (occurrence: None)
  Receive Date: 20151102
  Receipt Date: 20151102
  Transmission Date: 20160304
  Serious: Yes (Hospitalization, Disabling)
  Sender: FDA-Public Use
  Company Number: None

PATIENT
  Age: 19 Year
  Sex: Male
  Weight: 33.57 kg

DRUGS (4)
  1. ZOPICLONE (ZOPICLONE) [Suspect]
     Active Substance: ZOPICLONE
     Indication: INSOMNIA
     Dosage: 1 PILL
     Route: 048
     Dates: start: 20150205, end: 20151101
  2. NITRAZEPAM [Concomitant]
     Active Substance: NITRAZEPAM
  3. MULTIVITAMIN [Concomitant]
     Active Substance: VITAMINS
  4. MINERALS [Concomitant]
     Active Substance: MINERALS

REACTIONS (1)
  - Anorexia nervosa [None]

NARRATIVE: CASE EVENT DATE: 20151101
